FAERS Safety Report 23082359 (Version 1)
Quarter: 2023Q4

REPORT INFORMATION
  Report Type: Spontaneous
  Country: US (occurrence: None)
  Receive Date: 20231019
  Receipt Date: 20231019
  Transmission Date: 20240110
  Serious: Yes (Other)
  Sender: FDA-Public Use
  Company Number: US-Emmaus Medical, Inc.-EMM202310-000300

PATIENT
  Age: 46 Year
  Sex: Male
  Weight: 59.51 kg

DRUGS (2)
  1. ENDARI [Suspect]
     Active Substance: GLUTAMINE
     Indication: Haemoglobin C disease
     Dosage: 10 G
     Dates: start: 20230628
  2. ENDARI [Suspect]
     Active Substance: GLUTAMINE
     Indication: Sickle cell anaemia with crisis
     Dosage: 10 G
     Dates: start: 202307

REACTIONS (1)
  - Infection [Unknown]

NARRATIVE: CASE EVENT DATE: 20231001
